FAERS Safety Report 12561881 (Version 2)
Quarter: 2016Q3

REPORT INFORMATION
  Report Type: Spontaneous
  Country: US (occurrence: US)
  Receive Date: 20160715
  Receipt Date: 20160803
  Transmission Date: 20161109
  Serious: No
  Sender: FDA-Public Use
  Company Number: US-ACTELION-A-US2016-138947

PATIENT
  Age: 74 Year
  Sex: Female
  Weight: 46.26 kg

DRUGS (5)
  1. LETAIRIS [Concomitant]
     Active Substance: AMBRISENTAN
  2. ADCIRCA [Concomitant]
     Active Substance: TADALAFIL
  3. COUMADIN [Concomitant]
     Active Substance: WARFARIN SODIUM
  4. UPTRAVI [Suspect]
     Active Substance: SELEXIPAG
     Indication: PULMONARY HYPERTENSION
     Dosage: 800 MCG, BID
     Route: 048
     Dates: start: 20160601
  5. UPTRAVI [Suspect]
     Active Substance: SELEXIPAG
     Dosage: 1000 UNK, UNK
     Route: 048

REACTIONS (4)
  - Malaise [Recovered/Resolved]
  - Insomnia [Unknown]
  - Oral fungal infection [Unknown]
  - Headache [Recovered/Resolved]
